FAERS Safety Report 7159033-7 (Version None)
Quarter: 2010Q4

REPORT INFORMATION
  Report Type: 
  Country: None (occurrence: None)
  Receive Date: 20101214
  Receipt Date: 20101206
  Transmission Date: 20110411
  Serious: Yes (Disabling, Other)
  Sender: FDA-Public Use
  Company Number: US-PFIZER INC-2010165777

PATIENT
  Sex: Female
  Weight: 41.73 kg

DRUGS (4)
  1. DILANTIN [Suspect]
     Indication: EPILEPSY
     Dosage: 300 MG, 1X/DAY AT NIGHT
  2. PHENOBARBITAL [Concomitant]
     Dosage: 30 MG, 2X/DAY
  3. FUROSEMIDE [Concomitant]
     Dosage: 20 MG, 1X/DAY
  4. LEVOXYL [Concomitant]
     Dosage: 2 UG, 1X/DAY

REACTIONS (3)
  - CHRONIC OBSTRUCTIVE PULMONARY DISEASE [None]
  - DEMENTIA ALZHEIMER'S TYPE [None]
  - OSTEOPOROSIS [None]
